FAERS Safety Report 5610743-X (Version None)
Quarter: 2008Q1

REPORT INFORMATION
  Report Type: 
  Country: None (occurrence: None)
  Receive Date: 20080201
  Receipt Date: 20080128
  Transmission Date: 20080703
  Serious: Yes (Life-Threatening, Other)
  Sender: FDA-Public Use
  Company Number: PHBS2008ZA01440

PATIENT
  Age: 60 Year
  Sex: Female

DRUGS (5)
  1. DIOVAN HCT [Suspect]
     Indication: HYPERTENSION
     Dosage: VALS 80 / HCT 12.5 MG/DAY
     Route: 048
  2. DIOVAN HCT [Suspect]
     Dosage: VALS 160 / HCT 12.5 MG/DAY
     Route: 048
  3. GLUCOVANCE [Suspect]
     Indication: INSULIN RESISTANCE
     Dosage: 1 DF, BID
     Route: 048
  4. GLUCOVANCE [Suspect]
     Dosage: 0.5 DF, BID
     Route: 048
  5. METFORMIN HCL [Concomitant]
     Indication: INSULIN RESISTANCE

REACTIONS (13)
  - ASTHENIA [None]
  - BLOOD GLUCOSE DECREASED [None]
  - DRUG INEFFECTIVE [None]
  - FEELING ABNORMAL [None]
  - GAIT DISTURBANCE [None]
  - HYPERTENSION [None]
  - INSOMNIA [None]
  - LUNG INFECTION [None]
  - MALAISE [None]
  - PAIN [None]
  - PRESYNCOPE [None]
  - RASH [None]
  - RASH MACULAR [None]
